FAERS Safety Report 8535631-0 (Version None)
Quarter: 2012Q3

REPORT INFORMATION
  Report Type: 
  Country: None (occurrence: None)
  Receive Date: 20120725
  Receipt Date: 20120721
  Transmission Date: 20120928
  Serious: No
  Sender: FDA-Public Use
  Company Number: US-PFIZER INC-2012177093

PATIENT
  Sex: Male
  Weight: 104.3 kg

DRUGS (2)
  1. ADVIL [Suspect]
     Dosage: UNK, 2X/DAY
     Dates: start: 20120701
  2. ADVIL [Suspect]
     Indication: TOOTHACHE
     Dosage: UNK, 1X/DAY
     Dates: start: 20120701, end: 20120701

REACTIONS (1)
  - ABDOMINAL PAIN UPPER [None]
